FAERS Safety Report 4945755-2 (Version None)
Quarter: 2006Q1

REPORT INFORMATION
  Report Type: 
  Country: None (occurrence: None)
  Receive Date: 20060117
  Receipt Date: 20050316
  Transmission Date: 20060701
  Serious: Yes (Hospitalization)
  Sender: FDA-Public Use
  Company Number: A03200500752

PATIENT
  Age: 62 Year
  Sex: Female
  Weight: 40.8237 kg

DRUGS (6)
  1. PLAVIX [Suspect]
     Indication: CEREBROVASCULAR ACCIDENT
     Dosage: ORAL
     Route: 048
     Dates: start: 20020101
  2. METFORMIN [Concomitant]
  3. LOVASTATIN [Concomitant]
  4. GLIMEPIRIDE [Concomitant]
  5. VALSARTAN [Concomitant]
  6. INSULIN GLARGINE [Concomitant]

REACTIONS (1)
  - CEREBROVASCULAR ACCIDENT [None]
